FAERS Safety Report 17047178 (Version 2)
Quarter: 2020Q1

REPORT INFORMATION
  Report Type: Spontaneous
  Country: DE (occurrence: DE)
  Receive Date: 20191119
  Receipt Date: 20200129
  Transmission Date: 20200409
  Serious: Yes (Life-Threatening, Hospitalization, Other)
  Sender: FDA-Public Use
  Company Number: DE-BRISTOL-MYERS SQUIBB COMPANY-BMS-2019-109037

PATIENT
  Age: 61 Year
  Sex: Male

DRUGS (2)
  1. YERVOY [Suspect]
     Active Substance: IPILIMUMAB
     Indication: METASTATIC MALIGNANT MELANOMA
     Dosage: INFUSION
     Route: 050
     Dates: start: 201612
  2. OPDIVO [Suspect]
     Active Substance: NIVOLUMAB
     Indication: METASTATIC MALIGNANT MELANOMA
     Dosage: INFUSION
     Route: 050
     Dates: start: 201612

REACTIONS (5)
  - Autoimmune hepatitis [Unknown]
  - Basedow^s disease [Unknown]
  - Hyperglycaemia [Unknown]
  - Hypophysitis [Unknown]
  - Rash [Unknown]

NARRATIVE: CASE EVENT DATE: 201702
